FAERS Safety Report 8798648 (Version 1)
Quarter: 2012Q4

REPORT INFORMATION
  Report Type: Report from Study
  Country: HU (occurrence: HU)
  Receive Date: 20120920
  Receipt Date: 20120920
  Transmission Date: 20130627
  Serious: Yes (Other)
  Sender: FDA-Public Use
  Company Number: HU-ROCHE-CID000000002152262

PATIENT
  Sex: Female

DRUGS (2)
  1. XELODA [Suspect]
     Indication: BREAST CANCER
     Route: 048
     Dates: start: 20080723, end: 200903
  2. XELODA [Suspect]
     Indication: METASTASES TO LIVER

REACTIONS (3)
  - Pulmonary oedema [Unknown]
  - Metastases to liver [Unknown]
  - Therapeutic response unexpected [Unknown]
